FAERS Safety Report 5308103-4 (Version None)
Quarter: 2007Q1

REPORT INFORMATION
  Report Type: 
  Country: None (occurrence: None)
  Receive Date: 20070201
  Receipt Date: 20061226
  Transmission Date: 20070707
  Serious: No
  Sender: FDA-Public Use
  Company Number: 2006PV027458

PATIENT
  Age: 65 Year
  Sex: Female
  Weight: 112.4921 kg

DRUGS (9)
  1. BYETTA [Suspect]
     Indication: DIABETES MELLITUS NON-INSULIN-DEPENDENT
     Dosage: 5 MCG; BID; SC
     Route: 058
     Dates: start: 20061224
  2. HUMULIN 70/30 [Concomitant]
  3. HUMULIN L [Concomitant]
  4. HUMULIN N [Concomitant]
  5. ACTIS [Concomitant]
  6. QUINAPRIL [Concomitant]
  7. AMARYL [Concomitant]
  8. METFORMIN HCL [Concomitant]
  9. IMODIUM [Concomitant]

REACTIONS (2)
  - BLOOD GLUCOSE INCREASED [None]
  - DRUG INEFFECTIVE [None]
